FAERS Safety Report 14325173 (Version 2)
Quarter: 2018Q1

REPORT INFORMATION
  Report Type: Spontaneous
  Country: US (occurrence: US)
  Receive Date: 20171226
  Receipt Date: 20180222
  Transmission Date: 20180509
  Serious: No
  Sender: FDA-Public Use
  Company Number: US-ASTRAZENECA-2017SF28893

PATIENT
  Sex: Male

DRUGS (1)
  1. SYMBICORT [Suspect]
     Active Substance: BUDESONIDE\FORMOTEROL FUMARATE DIHYDRATE
     Dosage: 160/4.5MCG , UNKNOWN UNKNOWN
     Route: 055

REACTIONS (3)
  - Bronchitis [Unknown]
  - Intentional product use issue [Unknown]
  - Device malfunction [Unknown]
